FAERS Safety Report 23292646 (Version 1)
Quarter: 2023Q4

REPORT INFORMATION
  Report Type: Spontaneous
  Country: US (occurrence: US)
  Receive Date: 20231213
  Receipt Date: 20231213
  Transmission Date: 20240109
  Serious: No
  Sender: FDA-Public Use
  Company Number: US-SANOFI-01868672

PATIENT
  Sex: Female

DRUGS (1)
  1. TOUJEO [Suspect]
     Active Substance: INSULIN GLARGINE
     Indication: Type 2 diabetes mellitus
     Dosage: 28 TO 35 UNITS, QD

REACTIONS (4)
  - Anxiety [Unknown]
  - Stress [Unknown]
  - Product storage error [Unknown]
  - Intentional product misuse [Unknown]
